FAERS Safety Report 10265839 (Version 1)
Quarter: 2014Q2

REPORT INFORMATION
  Report Type: Spontaneous
  Country: FR (occurrence: FR)
  Receive Date: 20140627
  Receipt Date: 20140627
  Transmission Date: 20141212
  Serious: Yes (Hospitalization)
  Sender: FDA-Public Use
  Company Number: FR-GLAXOSMITHKLINE-B1006158A

PATIENT
  Age: 51 Year
  Sex: Female

DRUGS (1)
  1. LAMICTAL [Suspect]
     Indication: DEPRESSION
     Dosage: 1UNIT PER DAY
     Route: 048
     Dates: start: 201308

REACTIONS (10)
  - Dermatitis exfoliative [Recovered/Resolved]
  - Hepatocellular injury [Recovered/Resolved]
  - Pyrexia [Recovered/Resolved]
  - Toxic skin eruption [Recovered/Resolved]
  - Sepsis [Unknown]
  - Lymphopenia [Unknown]
  - Livedo reticularis [Recovered/Resolved]
  - Eyelid oedema [Recovered/Resolved]
  - Normochromic normocytic anaemia [Unknown]
  - Thrombocytopenia [Unknown]
